FAERS Safety Report 10846672 (Version 1)
Quarter: 2015Q1

REPORT INFORMATION
  Report Type: Spontaneous
  Country: JP (occurrence: JP)
  Receive Date: 20150220
  Receipt Date: 20150220
  Transmission Date: 20150721
  Serious: Yes (Other)
  Sender: FDA-Public Use
  Company Number: JP-CIPLA LTD.-2015JP01271

PATIENT

DRUGS (2)
  1. AXITINIB [Suspect]
     Active Substance: AXITINIB
     Indication: PANCREATIC CARCINOMA
     Dosage: 5 MG TWICE DAILY WITH FOOD IN 4 WEEK CYCLES
     Route: 048
  2. GEMCITABINE [Suspect]
     Active Substance: GEMCITABINE\GEMCITABINE HYDROCHLORIDE
     Indication: PANCREATIC CARCINOMA
     Dosage: (1000 MG/M2) AS A 30 MIN INFUSION ONCE WEEKLY FOR 3 WEEKS FOLLOWED BY 1 WEEK OFF IN 4 WEEK CYCLES
     Route: 042

REACTIONS (1)
  - Gastrointestinal perforation [Unknown]
